FAERS Safety Report 4312963-3 (Version None)
Quarter: 2004Q1

REPORT INFORMATION
  Report Type: 
  Country: None (occurrence: None)
  Receive Date: 20040302
  Receipt Date: 20031231
  Transmission Date: 20041129
  Serious: No
  Sender: FDA-Public Use
  Company Number: 701474

PATIENT
  Age: 24 Year
  Sex: Female

DRUGS (1)
  1. AMEVIVE [Suspect]
     Indication: PSORIASIS
     Dosage: 15 MG, QW, IM

REACTIONS (3)
  - ARTHROPOD BITE [None]
  - DRUG INEFFECTIVE [None]
  - RASH [None]
